FAERS Safety Report 23707137 (Version 1)
Quarter: 2024Q2

REPORT INFORMATION
  Report Type: Spontaneous
  Country: CN (occurrence: CN)
  Receive Date: 20240404
  Receipt Date: 20240404
  Transmission Date: 20240715
  Serious: Yes (Life-Threatening)
  Sender: FDA-Public Use
  Company Number: CN-MYLANLABS-2024M1030252

PATIENT
  Age: 13 Year
  Sex: Female

DRUGS (1)
  1. ZOLOFT [Suspect]
     Active Substance: SERTRALINE HYDROCHLORIDE
     Indication: Depression
     Dosage: 50 MILLIGRAM, BID
     Route: 048
     Dates: start: 20240324, end: 20240329

REACTIONS (1)
  - Suicidal behaviour [Recovering/Resolving]

NARRATIVE: CASE EVENT DATE: 20240329
